FAERS Safety Report 4775682-5 (Version None)
Quarter: 2005Q3

REPORT INFORMATION
  Report Type: 
  Country: None (occurrence: None)
  Receive Date: 20050920
  Receipt Date: 20050907
  Transmission Date: 20060218
  Serious: Yes (Other)
  Sender: FDA-Public Use
  Company Number: HQWYE336409SEP05

PATIENT
  Age: 31 Year
  Sex: Male

DRUGS (2)
  1. EFFEXOR [Suspect]
     Dosage: SEE IMAGE
     Dates: end: 20050101
  2. EFFEXOR [Suspect]
     Dosage: SEE IMAGE

REACTIONS (5)
  - ARTHRALGIA [None]
  - BRAIN DAMAGE [None]
  - DRUG DEPENDENCE [None]
  - DRUG WITHDRAWAL SYNDROME [None]
  - SUICIDAL IDEATION [None]
